FAERS Safety Report 16900447 (Version 9)
Quarter: 2020Q2

REPORT INFORMATION
  Report Type: Spontaneous
  Country: US (occurrence: US)
  Receive Date: 20191009
  Receipt Date: 20200507
  Transmission Date: 20200713
  Serious: No
  Sender: FDA-Public Use
  Company Number: US-PFIZER INC-2019436539

PATIENT
  Age: 64 Year
  Sex: Female
  Weight: 52.11 kg

DRUGS (3)
  1. PROGESTERONE. [Concomitant]
     Active Substance: PROGESTERONE
     Dosage: 100 MG, UNK
  2. PREMPHASE [Suspect]
     Active Substance: ESTROGENS, CONJUGATED\MEDROXYPROGESTERONE ACETATE
     Indication: HORMONE THERAPY
  3. PREMPHASE [Suspect]
     Active Substance: ESTROGENS, CONJUGATED\MEDROXYPROGESTERONE ACETATE
     Indication: MENOPAUSE
     Dosage: 1 DF, 1X/DAY (1 TABLET ONCE A DAY BY MOUTH FOR 28 DAYS)
     Route: 048

REACTIONS (20)
  - Insomnia [Unknown]
  - Depressed mood [Unknown]
  - Weight decreased [Unknown]
  - Malaise [Unknown]
  - Obsessive-compulsive disorder [Unknown]
  - Anxiety [Unknown]
  - Disturbance in attention [Unknown]
  - Ulcer [Unknown]
  - Confusional state [Unknown]
  - Dysphonia [Unknown]
  - Memory impairment [Unknown]
  - Weight gain poor [Unknown]
  - Hypoacusis [Unknown]
  - Intentional product misuse [Unknown]
  - Product dose omission [Unknown]
  - Pain in extremity [Unknown]
  - Mental disorder [Unknown]
  - Decreased appetite [Unknown]
  - Stress [Unknown]
  - Body temperature increased [Unknown]
